FAERS Safety Report 26170265 (Version 1)
Quarter: 2025Q4

REPORT INFORMATION
  Report Type: Spontaneous
  Country: JP (occurrence: JP)
  Receive Date: 20251217
  Receipt Date: 20251217
  Transmission Date: 20260118
  Serious: Yes (Hospitalization, Other)
  Sender: MERCK SHARP & DOHME LLC
  Company Number: JP-009507513-2280370

PATIENT
  Age: 7 Decade
  Sex: Female

DRUGS (3)
  1. KEYTRUDA [Suspect]
     Active Substance: PEMBROLIZUMAB
     Indication: Uterine cancer
     Route: 041
     Dates: start: 20240813
  2. LENVIMA [Suspect]
     Active Substance: LENVATINIB
     Indication: Uterine cancer
     Dosage: 20 MG
     Route: 048
     Dates: start: 20240813
  3. LENVIMA [Suspect]
     Active Substance: LENVATINIB
     Indication: Uterine cancer
     Dosage: 14 MG, DOSE REDUCED
     Route: 048

REACTIONS (7)
  - Rhabdomyolysis [Unknown]
  - Immune-mediated enterocolitis [Recovered/Resolved]
  - Immune-mediated encephalitis [Recovered/Resolved]
  - Myasthenia gravis [Recovered/Resolved]
  - Cholecystitis [Recovered/Resolved]
  - Immune-mediated cholangitis [Recovered/Resolved]
  - Immune-mediated enterocolitis [Recovered/Resolved]

NARRATIVE: CASE EVENT DATE: 20241001
